FAERS Safety Report 5313763-8 (Version None)
Quarter: 2007Q2

REPORT INFORMATION
  Report Type: 
  Country: None (occurrence: None)
  Receive Date: 20070426
  Receipt Date: 20070321
  Transmission Date: 20071010
  Serious: Yes (Hospitalization)
  Sender: FDA-Public Use
  Company Number: FRPFM-E-20070034

PATIENT
  Age: 51 Year
  Sex: Male

DRUGS (11)
  1. NAVELBINE [Suspect]
     Indication: LUNG NEOPLASM MALIGNANT
     Dosage: 10 MG/ML UNK; IV
     Route: 042
     Dates: start: 20060921, end: 20060921
  2. CISPLATIN [Suspect]
     Indication: LUNG NEOPLASM MALIGNANT
     Dosage: 75 MG/M2; UNK; IV
     Route: 042
     Dates: start: 20060927, end: 20060927
  3. TAXOTERE [Suspect]
     Dosage: 75 MG/M2 UNK; IV
     Route: 042
     Dates: start: 20060927, end: 20060927
  4. ACTISKENAN [Concomitant]
  5. ALFUZOSIN [Concomitant]
  6. KETOPROFEN [Concomitant]
  7. PLAVIX [Concomitant]
  8. NOCTAMIDE [Concomitant]
  9. RIVOTRIL [Concomitant]
  10. ZOCOR [Concomitant]
  11. NEXIUM [Concomitant]

REACTIONS (10)
  - ABDOMINAL PAIN [None]
  - ARTERIOSPASM CORONARY [None]
  - COLITIS ULCERATIVE [None]
  - DIARRHOEA [None]
  - FEBRILE NEUTROPENIA [None]
  - INFUSION RELATED REACTION [None]
  - LEUKOPENIA [None]
  - MUCOSAL INFLAMMATION [None]
  - RENAL FAILURE ACUTE [None]
  - SEPSIS [None]
